FAERS Safety Report 7676100-X (Version None)
Quarter: 2011Q3

REPORT INFORMATION
  Report Type: 
  Country: None (occurrence: None)
  Receive Date: 20110811
  Receipt Date: 20110804
  Transmission Date: 20111222
  Serious: Yes (Death, Other)
  Sender: FDA-Public Use
  Company Number: PHHY2011DE62840

PATIENT
  Sex: Female
  Weight: 88 kg

DRUGS (9)
  1. ALISKIREN [Suspect]
     Indication: HYPERTENSION
     Dosage: 300 MG, QD
     Route: 048
     Dates: start: 20090227
  2. METFORMIN HCL [Concomitant]
     Indication: TYPE 2 DIABETES MELLITUS
     Dosage: 1700 MG, QD
     Route: 048
     Dates: start: 20010501
  3. VALSARTAN [Suspect]
     Indication: HYPERTENSION
     Dosage: 320 MG, QD
     Route: 048
     Dates: start: 20060501
  4. CREON [Concomitant]
     Indication: PANCREATIC INSUFFICIENCY
     Dosage: 200000, QD
     Dates: start: 20030201
  5. STATIN [Concomitant]
  6. ANTIDEPRESSANTS [Concomitant]
     Dosage: UNK UKN, UNK
  7. ZANERIL [Concomitant]
     Indication: HYPERTENSION
     Dosage: 10 MG, QD
     Route: 048
     Dates: start: 20090701
  8. TILIDIN [Concomitant]
     Indication: PAIN
     Dosage: 100 MG, QD
     Route: 048
     Dates: start: 20040501
  9. OTHER CHOLESTEROL LOWERING DRUG [Concomitant]
     Dosage: UNK UKN, UNK

REACTIONS (7)
  - SCHIZOPHRENIA [None]
  - PARKINSONISM [None]
  - ANGINA PECTORIS [None]
  - CORONARY ARTERY DISEASE [None]
  - DIABETES MELLITUS [None]
  - DYSPNOEA [None]
  - BLOOD CHOLESTEROL INCREASED [None]
